FAERS Safety Report 9807375 (Version 2)
Quarter: 2014Q2

REPORT INFORMATION
  Report Type: Spontaneous
  Country: FR (occurrence: FR)
  Receive Date: 20140110
  Receipt Date: 20140521
  Transmission Date: 20141212
  Serious: Yes (Hospitalization, Disabling)
  Sender: FDA-Public Use
  Company Number: FR-AMGEN-FRASP2014001203

PATIENT
  Age: 63 Year
  Sex: Male

DRUGS (5)
  1. ENBREL [Suspect]
     Indication: PSORIATIC ARTHROPATHY
     Dosage: 50 MG, WEEKLY
     Route: 058
     Dates: start: 20131120, end: 20131204
  2. PRAVASTATIN SODIUM [Concomitant]
     Dosage: 40 MG, 1X/DAY
     Route: 048
     Dates: end: 20131210
  3. DIAMICRON [Concomitant]
     Dosage: 60 MG, 1X/DAY
     Route: 048
     Dates: end: 20131210
  4. GLUCOPHAGE [Concomitant]
     Dosage: 2000 MG, DAILY
     Route: 048
     Dates: end: 20131210
  5. OLMETEC [Concomitant]
     Dosage: 20 MG, 1X/DAY
     Route: 048
     Dates: end: 20131210

REACTIONS (4)
  - Heart rate irregular [Unknown]
  - Heart sounds abnormal [Unknown]
  - Septic arthritis streptococcal [Recovered/Resolved with Sequelae]
  - Device related infection [Recovered/Resolved with Sequelae]
